FAERS Safety Report 26054069 (Version 1)
Quarter: 2025Q4

REPORT INFORMATION
  Report Type: Spontaneous
  Country: CN (occurrence: CN)
  Receive Date: 20251117
  Receipt Date: 20251117
  Transmission Date: 20260117
  Serious: Yes (Hospitalization)
  Sender: PFIZER
  Company Number: CN-PFIZER INC-PV202500133341

PATIENT
  Age: 34 Year
  Sex: Female
  Weight: 68.8 kg

DRUGS (6)
  1. METHOTREXATE SODIUM [Suspect]
     Active Substance: METHOTREXATE SODIUM
     Indication: Ectopic pregnancy
     Dosage: 50 MG, 1X/DAY
     Route: 030
     Dates: start: 20251021, end: 20251021
  2. POSTERIOR PITUITARY [Concomitant]
     Indication: Ectopic pregnancy
     Dosage: 6 IU, 1X/DAY
     Route: 030
     Dates: start: 20251021, end: 20251021
  3. TRANEXAMIC ACID [Concomitant]
     Active Substance: TRANEXAMIC ACID
     Indication: Ectopic pregnancy
     Dosage: 0.5 G, 1X/DAY
     Route: 041
     Dates: start: 20251021, end: 20251023
  4. SODIUM CHLORIDE [Concomitant]
     Active Substance: SODIUM CHLORIDE
     Indication: Vehicle solution use
     Dosage: 250 ML, 1X/DAY
     Route: 041
     Dates: start: 20251021, end: 20251023
  5. ROCEPHIN [Concomitant]
     Active Substance: CEFTRIAXONE SODIUM
     Indication: Anti-infective therapy
     Dosage: 2 G, 1X/DAY
     Route: 041
     Dates: start: 20251025, end: 20251031
  6. SODIUM CHLORIDE [Concomitant]
     Active Substance: SODIUM CHLORIDE
     Indication: Vehicle solution use
     Dosage: 100 ML, 1X/DAY
     Route: 041
     Dates: start: 20251025, end: 20251031

REACTIONS (12)
  - Rash [Recovering/Resolving]
  - Mouth ulceration [Recovering/Resolving]
  - Dysphagia [Unknown]
  - Renal impairment [Not Recovered/Not Resolved]
  - Myelosuppression [Not Recovered/Not Resolved]
  - Haemoglobin decreased [Not Recovered/Not Resolved]
  - White blood cell count decreased [Not Recovered/Not Resolved]
  - Neutrophil count decreased [Not Recovered/Not Resolved]
  - Platelet count decreased [Not Recovered/Not Resolved]
  - Pyrexia [Not Recovered/Not Resolved]
  - Oral candidiasis [Not Recovered/Not Resolved]
  - Off label use [Unknown]

NARRATIVE: CASE EVENT DATE: 20251001
